FAERS Safety Report 25453894 (Version 1)
Quarter: 2025Q2

REPORT INFORMATION
  Report Type: Report from Study
  Country: BR (occurrence: BR)
  Receive Date: 20250619
  Receipt Date: 20250619
  Transmission Date: 20250716
  Serious: Yes (Other)
  Sender: ABBVIE
  Company Number: BR-ABBVIE-6325105

PATIENT
  Age: 39 Year
  Sex: Male
  Weight: 115 kg

DRUGS (7)
  1. HUMIRA [Suspect]
     Active Substance: ADALIMUMAB
     Indication: Juvenile idiopathic arthritis
     Route: 058
  2. SKYRIZI [Suspect]
     Active Substance: RISANKIZUMAB-RZAA
     Indication: Product used for unknown indication
     Route: 058
  3. COSENTYX [Suspect]
     Active Substance: SECUKINUMAB
     Indication: Product used for unknown indication
     Route: 065
  4. CHLORAMPHENICOL\PREDNISOLONE [Suspect]
     Active Substance: CHLORAMPHENICOL\PREDNISOLONE
     Indication: Product used for unknown indication
     Route: 048
  5. CHLORAMPHENICOL\PREDNISOLONE [Suspect]
     Active Substance: CHLORAMPHENICOL\PREDNISOLONE
     Indication: Product used for unknown indication
     Route: 048
  6. CHLORAMPHENICOL\PREDNISOLONE [Suspect]
     Active Substance: CHLORAMPHENICOL\PREDNISOLONE
     Indication: Product used for unknown indication
     Route: 048
  7. METFORMIN [Concomitant]
     Active Substance: METFORMIN HYDROCHLORIDE
     Indication: Diabetes mellitus
     Route: 048
     Dates: start: 2025

REACTIONS (9)
  - Renal failure [Unknown]
  - Skin lesion [Not Recovered/Not Resolved]
  - Headache [Recovering/Resolving]
  - Asthenia [Recovered/Resolved]
  - Pruritus [Recovering/Resolving]
  - Blood glucose abnormal [Not Recovered/Not Resolved]
  - Skin discolouration [Not Recovered/Not Resolved]
  - Drug ineffective [Not Recovered/Not Resolved]
  - Psoriasis [Recovering/Resolving]

NARRATIVE: CASE EVENT DATE: 20250101
